FAERS Safety Report 5224877-5 (Version None)
Quarter: 2007Q1

REPORT INFORMATION
  Report Type: 
  Country: None (occurrence: None)
  Receive Date: 20070126
  Receipt Date: 20070115
  Transmission Date: 20070707
  Serious: Yes (Hospitalization)
  Sender: FDA-Public Use
  Company Number: HQWYE903729SEP03

PATIENT
  Age: 55 Year
  Sex: Female
  Weight: 71.28 kg

DRUGS (4)
  1. PREMPRO [Suspect]
     Indication: DRUG USE FOR UNKNOWN INDICATION
     Dosage: ORAL
     Route: 048
     Dates: start: 19970901, end: 20000101
  2. CLIMARA [Suspect]
     Indication: DRUG USE FOR UNKNOWN INDICATION
  3. ESTRADERM [Suspect]
     Indication: DRUG USE FOR UNKNOWN INDICATION
  4. PREMARIN [Suspect]
     Indication: DRUG USE FOR UNKNOWN INDICATION

REACTIONS (23)
  - ACTIVATED PARTIAL THROMBOPLASTIN TIME PROLONGED [None]
  - ACTIVATED PROTEIN C RESISTANCE [None]
  - AGITATION [None]
  - ARTERIAL HAEMORRHAGE [None]
  - ARTERIAL THROMBOSIS LIMB [None]
  - BACK PAIN [None]
  - CARDIAC ARREST [None]
  - CATHETER RELATED COMPLICATION [None]
  - CATHETER SITE HAEMORRHAGE [None]
  - COAGULOPATHY [None]
  - DEEP VEIN THROMBOSIS [None]
  - EMBOLISM [None]
  - GASTROINTESTINAL HAEMORRHAGE [None]
  - HEMIPARESIS [None]
  - HYPOTENSION [None]
  - INTERNATIONAL NORMALISED RATIO INCREASED [None]
  - ISCHAEMIA [None]
  - JUGULAR VEIN THROMBOSIS [None]
  - PERIPHERAL ARTERIAL OCCLUSIVE DISEASE [None]
  - PHLEBITIS SUPERFICIAL [None]
  - PNEUMONIA [None]
  - SUBCLAVIAN VEIN THROMBOSIS [None]
  - VENA CAVA THROMBOSIS [None]
